FAERS Safety Report 4571643-X (Version None)
Quarter: 2005Q1

REPORT INFORMATION
  Report Type: 
  Country: None (occurrence: None)
  Receive Date: 20050203
  Receipt Date: 20050203
  Transmission Date: 20050727
  Serious: Yes (Other)
  Sender: FDA-Public Use
  Company Number: None

PATIENT
  Sex: Female
  Weight: 44.9061 kg

DRUGS (1)
  1. DIPROLENE AF [Suspect]
     Indication: DERMATITIS CONTACT
     Dosage: SPARINGLY BID TOPICAL
     Route: 061
     Dates: start: 19980422, end: 20030101

REACTIONS (2)
  - DRUG EFFECT DECREASED [None]
  - PHARMACEUTICAL PRODUCT COMPLAINT [None]
